FAERS Safety Report 16899160 (Version 1)
Quarter: 2019Q4

REPORT INFORMATION
  Report Type: Spontaneous
  Country: US (occurrence: US)
  Receive Date: 20191008
  Receipt Date: 20191008
  Transmission Date: 20200122
  Serious: Yes (Hospitalization)
  Sender: FDA-Public Use
  Company Number: None

PATIENT
  Age: 88 Year
  Sex: Male
  Weight: 81 kg

DRUGS (1)
  1. KEYTRUDA [Suspect]
     Active Substance: PEMBROLIZUMAB
     Indication: LUNG CARCINOMA CELL TYPE UNSPECIFIED STAGE IV
     Dates: start: 20190709, end: 20190731

REACTIONS (8)
  - Diplopia [None]
  - Speech disorder [None]
  - Eyelid ptosis [None]
  - Myasthenia gravis [None]
  - Dysphagia [None]
  - Mastication disorder [None]
  - Dyspnoea [None]
  - Muscular weakness [None]

NARRATIVE: CASE EVENT DATE: 20190806
